FAERS Safety Report 9730859 (Version 2)
Quarter: 2014Q2

REPORT INFORMATION
  Report Type: Spontaneous
  Country: NL (occurrence: NL)
  Receive Date: 20131203
  Receipt Date: 20140423
  Transmission Date: 20141212
  Serious: Yes (Other)
  Sender: FDA-Public Use
  Company Number: NL-AMGEN-NLDSP2013083768

PATIENT
  Age: 64 Year
  Sex: Female
  Weight: 65 kg

DRUGS (6)
  1. PROLIA [Suspect]
     Indication: OSTEOPOROSIS
     Dosage: UNK UNK, Q6MO
     Route: 065
     Dates: start: 20130306
  2. PROLIA [Suspect]
     Indication: SPINAL DISORDER
  3. EZETROL [Concomitant]
     Indication: BLOOD CHOLESTEROL
     Dosage: 10 MG, QD
     Route: 048
     Dates: start: 200810
  4. VITAMIN D                          /00107901/ [Concomitant]
     Indication: OSTEOPOROSIS
     Dosage: 2800 IU, 2 TIMES/WK
     Route: 048
     Dates: start: 20110419
  5. METAMUCIL                          /00029101/ [Concomitant]
     Indication: CONSTIPATION
     Dosage: 3.4 G, AS NECESSARY
     Route: 048
     Dates: start: 20130117
  6. DUSPATAL                           /00139402/ [Concomitant]
     Indication: IRRITABLE BOWEL SYNDROME
     Dosage: 200 MG, AS NECESSARY
     Route: 048
     Dates: start: 20080617

REACTIONS (6)
  - Urinary tract infection [Unknown]
  - Alopecia [Unknown]
  - Sinus congestion [Unknown]
  - Sinus disorder [Unknown]
  - Ear disorder [Unknown]
  - Skin infection [Unknown]
